FAERS Safety Report 4718557-X (Version None)
Quarter: 2005Q3

REPORT INFORMATION
  Report Type: 
  Country: None (occurrence: None)
  Receive Date: 20050720
  Receipt Date: 20040826
  Transmission Date: 20060218
  Serious: Yes (Hospitalization, Other)
  Sender: FDA-Public Use
  Company Number: 200416487US

PATIENT
  Age: 76 Year
  Sex: Female
  Weight: 86 kg

DRUGS (9)
  1. DOCETAXEL [Suspect]
     Indication: BREAST CANCER METASTATIC
     Route: 042
     Dates: start: 20040512, end: 20040805
  2. EPOGEN [Concomitant]
  3. TEMAZEPAM [Concomitant]
  4. LASIX [Concomitant]
  5. LOSEC [Concomitant]
  6. NITROGLYCERIN [Concomitant]
  7. DURAGESIC-100 [Concomitant]
  8. AMLODIPINE [Concomitant]
  9. ZOCOR [Concomitant]

REACTIONS (4)
  - DYSPNOEA [None]
  - FATIGUE [None]
  - LEUKOPENIA [None]
  - LYMPHOPENIA [None]
